FAERS Safety Report 10176332 (Version 1)
Quarter: 2014Q2

REPORT INFORMATION
  Report Type: Spontaneous
  Country: TR (occurrence: TR)
  Receive Date: 20140516
  Receipt Date: 20140516
  Transmission Date: 20141212
  Serious: Yes (Other)
  Sender: FDA-Public Use
  Company Number: TR-SA-2014SA058412

PATIENT
  Age: 65 Year
  Sex: Female
  Weight: 61.7 kg

DRUGS (3)
  1. ELOXATIN [Suspect]
     Indication: RECTAL CANCER
     Route: 042
     Dates: start: 20140421
  2. FOLIC ACID [Concomitant]
     Route: 042
     Dates: start: 20140421
  3. 5-FU [Concomitant]
     Route: 042
     Dates: start: 20140421

REACTIONS (4)
  - Chills [Recovering/Resolving]
  - Muscle twitching [Recovering/Resolving]
  - Pain in extremity [Recovering/Resolving]
  - Hypoaesthesia [Recovering/Resolving]
